FAERS Safety Report 6186819-8 (Version None)
Quarter: 2009Q2

REPORT INFORMATION
  Report Type: 
  Country: None (occurrence: None)
  Receive Date: 20090512
  Receipt Date: 20090507
  Transmission Date: 20091009
  Serious: Yes (Other)
  Sender: FDA-Public Use
  Company Number: AR-ROXANE LABORATORIES, INC.-2009-RO-00464RO

PATIENT
  Age: 21 Year
  Sex: Female

DRUGS (7)
  1. LAMOTRIGINE [Suspect]
     Indication: TONIC CONVULSION
  2. AMOXICILLIN [Suspect]
     Indication: PYREXIA
  3. AMOXICILLIN [Suspect]
     Indication: PHARYNGEAL ERYTHEMA
  4. ERYTHROMYCIN [Suspect]
     Indication: PYREXIA
  5. ERYTHROMYCIN [Suspect]
     Indication: PHARYNGEAL ERYTHEMA
  6. ANTIHISTAMINE [Concomitant]
  7. VITAMIN K [Concomitant]

REACTIONS (2)
  - ACUTE HEPATIC FAILURE [None]
  - DRUG RASH WITH EOSINOPHILIA AND SYSTEMIC SYMPTOMS [None]
